FAERS Safety Report 9753628 (Version 1)
Quarter: 2013Q4

REPORT INFORMATION
  Report Type: Spontaneous
  Country: FR (occurrence: None)
  Receive Date: 20131211
  Receipt Date: 20131211
  Transmission Date: 20140711
  Serious: Yes (Congenital Anomaly)
  Sender: FDA-Public Use
  Company Number: DSM-2013-01150

PATIENT
  Age: 1 Day
  Sex: Male
  Weight: 1.67 kg

DRUGS (1)
  1. OLMETEC (OLMESARTAN MEDOXOMIL) [Suspect]
     Indication: FOETAL EXPOSURE DURING PREGNANCY
     Dosage: TRANSPLACENTAL
     Dates: start: 20130206, end: 20130916

REACTIONS (12)
  - Tachycardia foetal [None]
  - Foetal growth restriction [None]
  - Oligohydramnios [None]
  - Respiratory distress [None]
  - Anuria [None]
  - Hypotension [None]
  - Renal aplasia [None]
  - Renal failure neonatal [None]
  - Urinary tract disorder [None]
  - Hypocalvaria [None]
  - Cardiac disorder [None]
  - Foetal exposure during pregnancy [None]
